FAERS Safety Report 13474029 (Version 1)
Quarter: 2017Q2

REPORT INFORMATION
  Report Type: Spontaneous
  Country: US (occurrence: US)
  Receive Date: 20170424
  Receipt Date: 20170424
  Transmission Date: 20170830
  Serious: No
  Sender: FDA-Public Use
  Company Number: US-SA-2017SA007467

PATIENT
  Age: 66 Year
  Sex: Female

DRUGS (1)
  1. ENOXAPARIN SODIUM - WINTHROP [Suspect]
     Active Substance: ENOXAPARIN SODIUM
     Indication: THROMBOSIS
     Route: 065
     Dates: start: 20161223, end: 20161231

REACTIONS (3)
  - Rash generalised [Recovered/Resolved]
  - Blister [Not Recovered/Not Resolved]
  - Pruritus [Recovered/Resolved]
